FAERS Safety Report 13588536 (Version 5)
Quarter: 2018Q1

REPORT INFORMATION
  Report Type: Report from Study
  Country: BE (occurrence: BE)
  Receive Date: 20170529
  Receipt Date: 20180124
  Transmission Date: 20180508
  Serious: Yes (Hospitalization, Other)
  Sender: FDA-Public Use
  Company Number: BE-ROCHE-1919142

PATIENT
  Age: 53 Year
  Sex: Female
  Weight: 69.5 kg

DRUGS (5)
  1. BACTRIM [Concomitant]
     Active Substance: SULFAMETHOXAZOLE\TRIMETHOPRIM
     Route: 065
     Dates: start: 20160330
  2. LENALIDOMIDE [Suspect]
     Active Substance: LENALIDOMIDE
     Indication: B-CELL LYMPHOMA
     Dosage: ON 29/DEC/2016, MOST RECENT DOSE PRIOR TO SAE
     Route: 065
     Dates: start: 20150820, end: 20161229
  3. ZOVIRAX [Concomitant]
     Active Substance: ACYCLOVIR
     Route: 065
     Dates: start: 20160330
  4. ZESTRIL [Concomitant]
     Active Substance: LISINOPRIL
     Route: 065
     Dates: start: 20170302
  5. OBINUTUZUMAB. [Suspect]
     Active Substance: OBINUTUZUMAB
     Indication: B-CELL LYMPHOMA
     Dosage: MOST RECENT DOSE ON 05/JAN/2017 AND 30/MAR/2017
     Route: 042
     Dates: start: 20150827

REACTIONS (4)
  - Renal failure [Recovered/Resolved]
  - Cardiac failure congestive [Not Recovered/Not Resolved]
  - Transient ischaemic attack [Recovered/Resolved]
  - Cardiac failure [Recovered/Resolved]

NARRATIVE: CASE EVENT DATE: 20170218
